FAERS Safety Report 6353733-4 (Version None)
Quarter: 2009Q3

REPORT INFORMATION
  Report Type: 
  Country: None (occurrence: None)
  Receive Date: 20090912
  Receipt Date: 20090622
  Transmission Date: 20100115
  Serious: No
  Sender: FDA-Public Use
  Company Number: US-ABBOTT-08P-163-0465357-00

PATIENT
  Sex: Male
  Weight: 63.56 kg

DRUGS (7)
  1. HUMIRA [Suspect]
     Indication: CROHN'S DISEASE
     Dosage: STARTER DOSE
     Route: 058
     Dates: start: 20080707
  2. HUMIRA [Suspect]
     Dosage: X1
  3. HUMIRA [Suspect]
     Indication: CROHN'S DISEASE
     Route: 058
     Dates: start: 20080721
  4. DIMETICONE, ACTIVATED [Concomitant]
     Indication: CROHN'S DISEASE
     Dosage: 1 WITH EVERY MEAL
     Route: 048
     Dates: start: 20080708
  5. BISACODYL [Concomitant]
     Indication: CONSTIPATION PROPHYLAXIS
     Dosage: 1 IN AM AND IN PM WITH MEALS, 2 IN 1 D
     Route: 048
     Dates: start: 20080601
  6. ACETAMINOPHEN [Concomitant]
     Indication: PAIN
     Dosage: 2 IN 1 D, AS NEEDED
     Route: 048
     Dates: start: 20080716
  7. ADVIL PM [Concomitant]
     Indication: SLEEP DISORDER THERAPY
     Dosage: AT NIGHT, AS NEEDED
     Route: 048
     Dates: start: 20080701

REACTIONS (3)
  - DRUG DELIVERY SYSTEM MALFUNCTION [None]
  - INJECTION SITE PAIN [None]
  - WRONG TECHNIQUE IN DRUG USAGE PROCESS [None]
